FAERS Safety Report 15440959 (Version 1)
Quarter: 2018Q3

REPORT INFORMATION
  Report Type: Spontaneous
  Country: US (occurrence: US)
  Receive Date: 20180928
  Receipt Date: 20180928
  Transmission Date: 20181010
  Serious: Yes (Other)
  Sender: FDA-Public Use
  Company Number: US-JNJFOC-20180928682

PATIENT
  Sex: Female
  Weight: 82.56 kg

DRUGS (3)
  1. BENZTROPINE. [Concomitant]
     Active Substance: BENZTROPINE
     Indication: TREMOR
     Route: 065
  2. INVEGA [Suspect]
     Active Substance: PALIPERIDONE
     Indication: PSYCHOTIC DISORDER
     Route: 048
  3. RISPERDONE [Suspect]
     Active Substance: RISPERIDONE
     Indication: PSYCHOTIC DISORDER
     Route: 048

REACTIONS (1)
  - Disability [Recovered/Resolved]
